FAERS Safety Report 19798104 (Version 1)
Quarter: 2021Q3

REPORT INFORMATION
  Report Type: Spontaneous
  Country: JP (occurrence: JP)
  Receive Date: 20210907
  Receipt Date: 20210907
  Transmission Date: 20211014
  Serious: Yes (Death, Life-Threatening)
  Sender: FDA-Public Use
  Company Number: JP-GEHPL-2020JSU002974AA

PATIENT

DRUGS (9)
  1. OMNIPAQUE [Suspect]
     Active Substance: IOHEXOL
     Indication: COMPUTERISED TOMOGRAM CORONARY ARTERY
     Dosage: 100 ML, SINGLE
     Route: 042
     Dates: start: 20200701, end: 20200701
  2. OMNIPAQUE [Suspect]
     Active Substance: IOHEXOL
     Indication: PRODUCT USED FOR UNKNOWN INDICATION
  3. WARFARIN [Concomitant]
     Active Substance: WARFARIN
     Dosage: UNK
  4. NICORANDIL [Concomitant]
     Active Substance: NICORANDIL
     Dosage: UNK
  5. ASPENON [Concomitant]
     Active Substance: APRINDINE HYDROCHLORIDE
     Dosage: UNK
  6. BAYASPIRIN [Concomitant]
     Active Substance: ASPIRIN
     Dosage: UNK
  7. REBAMIPIDE [Concomitant]
     Active Substance: REBAMIPIDE
     Dosage: UNK
  8. ALOSENN [SENNOSIDE A+B] [Concomitant]
     Dosage: UNK
  9. AMEZINIUM METILSULFATE [Concomitant]
     Active Substance: AMEZINIUM METILSULFATE
     Dosage: UNK

REACTIONS (3)
  - Multiple organ dysfunction syndrome [Fatal]
  - Intestinal ischaemia [Fatal]
  - Anaphylactic shock [Recovering/Resolving]

NARRATIVE: CASE EVENT DATE: 20200701
